FAERS Safety Report 10055197 (Version 1)
Quarter: 2014Q2

REPORT INFORMATION
  Report Type: Spontaneous
  Country: US (occurrence: US)
  Receive Date: 20140403
  Receipt Date: 20140403
  Transmission Date: 20141212
  Serious: Yes (Hospitalization)
  Sender: FDA-Public Use
  Company Number: US-RANBAXY-2014US-79594

PATIENT
  Age: 72 Year
  Sex: Male

DRUGS (2)
  1. CLINDAMYCIN [Suspect]
     Indication: RHINITIS
     Dosage: 300 MG, QID
     Route: 065
     Dates: start: 201401, end: 20140117
  2. METFORMIN [Concomitant]
     Indication: DIABETES MELLITUS
     Dosage: UNK
     Route: 065

REACTIONS (4)
  - Clostridium difficile infection [Unknown]
  - Asthenia [Unknown]
  - Weight decreased [Unknown]
  - Anaemia [Unknown]
